FAERS Safety Report 7818310-4 (Version None)
Quarter: 2011Q4

REPORT INFORMATION
  Report Type: 
  Country: None (occurrence: None)
  Receive Date: 20111017
  Receipt Date: 20111003
  Transmission Date: 20120403
  Serious: Yes (Other)
  Sender: FDA-Public Use
  Company Number: US-BAYER-2011-094897

PATIENT
  Sex: Female

DRUGS (1)
  1. SODIUM BICARBONATE [Suspect]
     Route: 048

REACTIONS (2)
  - DYSPNOEA [None]
  - CHOKING [None]
